FAERS Safety Report 10969662 (Version 2)
Quarter: 2015Q2

REPORT INFORMATION
  Report Type: Report from Study
  Country: US (occurrence: US)
  Receive Date: 20150331
  Receipt Date: 20150408
  Transmission Date: 20150821
  Serious: Yes (Hospitalization)
  Sender: FDA-Public Use
  Company Number: US-NOVOPROD-443176

PATIENT
  Age: 63 Year
  Sex: Male
  Weight: 105.31 kg

DRUGS (6)
  1. NOVORAPID [Suspect]
     Active Substance: INSULIN ASPART
     Indication: TYPE 2 DIABETES MELLITUS
     Dosage: 44.0,,QD
     Route: 058
     Dates: start: 20141014, end: 20141111
  2. NOVORAPID [Suspect]
     Active Substance: INSULIN ASPART
     Indication: TYPE 2 DIABETES MELLITUS
     Dosage: 84 U, QD
     Route: 058
     Dates: start: 20141014
  3. BLINDED IDEG 100U VIAL [Suspect]
     Active Substance: INSULIN DEGLUDEC
     Indication: TYPE 2 DIABETES MELLITUS
     Dosage: 44.0,,QD
     Route: 058
     Dates: start: 20141014, end: 20141111
  4. LANTUS [Suspect]
     Active Substance: INSULIN GLARGINE
     Indication: TYPE 2 DIABETES MELLITUS
     Dosage: 44.0,,QD
     Route: 058
     Dates: start: 20141014, end: 20141111
  5. BLINDED NO DRUG GIVEN [Suspect]
     Active Substance: UNSPECIFIED INGREDIENT
     Indication: TYPE 2 DIABETES MELLITUS
     Dosage: 44.0,,QD
     Route: 058
     Dates: start: 20141014, end: 20141111
  6. BLINDED UNKNOWN [Suspect]
     Active Substance: UNSPECIFIED INGREDIENT
     Indication: TYPE 2 DIABETES MELLITUS
     Dosage: 44.0,,QD
     Route: 058
     Dates: start: 20141014, end: 20141111

REACTIONS (1)
  - Acute myocardial infarction [Recovered/Resolved]

NARRATIVE: CASE EVENT DATE: 20150220
